FAERS Safety Report 23613147 (Version 1)
Quarter: 2024Q1

REPORT INFORMATION
  Report Type: Report from Study
  Country: US (occurrence: US)
  Receive Date: 20240308
  Receipt Date: 20240308
  Transmission Date: 20240410
  Serious: Yes (Other)
  Sender: FDA-Public Use
  Company Number: US-JAZZ PHARMACEUTICALS-2021-US-002293

PATIENT
  Age: 27 Year
  Sex: Female

DRUGS (11)
  1. XYWAV [Suspect]
     Active Substance: CALCIUM OXYBATE\MAGNESIUM OXYBATE\POTASSIUM OXYBATE\SODIUM OXYBATE
     Indication: Narcolepsy
     Dosage: 2.25 GRAM, BID
     Route: 048
     Dates: start: 20210109, end: 20210109
  2. XYWAV [Suspect]
     Active Substance: CALCIUM OXYBATE\MAGNESIUM OXYBATE\POTASSIUM OXYBATE\SODIUM OXYBATE
     Indication: Cataplexy
     Dosage: 2.25 GRAM, BID
     Route: 048
     Dates: start: 20210112, end: 202101
  3. XYWAV [Suspect]
     Active Substance: CALCIUM OXYBATE\MAGNESIUM OXYBATE\POTASSIUM OXYBATE\SODIUM OXYBATE
     Indication: Somnolence
     Dosage: 2.25 GRAM, QD
     Route: 048
     Dates: start: 20210203
  4. XYWAV [Suspect]
     Active Substance: CALCIUM OXYBATE\MAGNESIUM OXYBATE\POTASSIUM OXYBATE\SODIUM OXYBATE
     Dosage: 2.5 G TO 2.75 G, B.I.D.
     Route: 048
     Dates: start: 2021
  5. XYWAV [Suspect]
     Active Substance: CALCIUM OXYBATE\MAGNESIUM OXYBATE\POTASSIUM OXYBATE\SODIUM OXYBATE
     Dosage: UNK
  6. XYWAV [Suspect]
     Active Substance: CALCIUM OXYBATE\MAGNESIUM OXYBATE\POTASSIUM OXYBATE\SODIUM OXYBATE
     Dosage: UNK
     Dates: start: 20231109
  7. MIRTAZAPINE [Suspect]
     Active Substance: MIRTAZAPINE
     Indication: Anxiety
     Dosage: UNK
  8. MIRTAZAPINE [Suspect]
     Active Substance: MIRTAZAPINE
     Indication: Depression
  9. INHALERIN [Concomitant]
     Indication: Product used for unknown indication
     Dosage: UNK
     Dates: start: 20231109
  10. ONDANSETRON [Concomitant]
     Active Substance: ONDANSETRON
     Indication: Product used for unknown indication
     Dosage: UNK
     Dates: start: 20231109
  11. LAMICTAL [Concomitant]
     Active Substance: LAMOTRIGINE
     Indication: Product used for unknown indication
     Dosage: UNK

REACTIONS (25)
  - Pneumonia [Unknown]
  - Retching [Unknown]
  - Nausea [Unknown]
  - Headache [Unknown]
  - Anxiety [Not Recovered/Not Resolved]
  - Dizziness [Unknown]
  - Abnormal dreams [Unknown]
  - Presyncope [Unknown]
  - Stress [Unknown]
  - Abdominal pain lower [Unknown]
  - Constipation [Unknown]
  - Vomiting [Unknown]
  - Sedation [Unknown]
  - Decreased appetite [Unknown]
  - Diarrhoea [Unknown]
  - Feeling drunk [Unknown]
  - Muscle spasms [Unknown]
  - Nasopharyngitis [Unknown]
  - Glucose tolerance impaired [Recovered/Resolved]
  - Social anxiety disorder [Unknown]
  - Depression [Unknown]
  - Wrong technique in product usage process [Unknown]
  - Product dose omission issue [Unknown]
  - Product storage error [Unknown]
  - Product preparation error [Unknown]

NARRATIVE: CASE EVENT DATE: 20210101
